FAERS Safety Report 14710179 (Version 1)
Quarter: 2018Q2

REPORT INFORMATION
  Report Type: Spontaneous
  Country: US (occurrence: US)
  Receive Date: 20180403
  Receipt Date: 20180403
  Transmission Date: 20180711
  Serious: No
  Sender: FDA-Public Use
  Company Number: US-ROCHE-1906747

PATIENT
  Age: 59 Year
  Sex: Female
  Weight: 75.46 kg

DRUGS (7)
  1. ERIVEDGE [Suspect]
     Active Substance: VISMODEGIB
     Route: 048
     Dates: start: 20161009, end: 20170228
  2. ESTRADIOL. [Concomitant]
     Active Substance: ESTRADIOL
     Route: 048
  3. ZOLOFT [Concomitant]
     Active Substance: SERTRALINE HYDROCHLORIDE
     Route: 048
  4. CINNAMON. [Concomitant]
     Active Substance: CINNAMON
     Route: 048
  5. ALDARA [Concomitant]
     Active Substance: IMIQUIMOD
     Dosage: 1 APPLICATION TO AFFECTED AREA AT BEDTIME EXTERNAL
     Route: 065
  6. ERIVEDGE [Suspect]
     Active Substance: VISMODEGIB
     Indication: SOFT TISSUE SARCOMA
     Route: 048
     Dates: start: 20160902
  7. TURMERIC [Concomitant]
     Active Substance: HERBALS\TURMERIC
     Route: 048

REACTIONS (10)
  - Diarrhoea [Recovering/Resolving]
  - Myalgia [Recovering/Resolving]
  - Decreased appetite [Recovering/Resolving]
  - Fatigue [Recovering/Resolving]
  - Nausea [Recovering/Resolving]
  - Muscle spasms [Unknown]
  - Madarosis [Recovering/Resolving]
  - Arthralgia [Recovering/Resolving]
  - Headache [Recovering/Resolving]
  - Weight decreased [Recovering/Resolving]

NARRATIVE: CASE EVENT DATE: 20161110
